FAERS Safety Report 7915974-1 (Version None)
Quarter: 2011Q4

REPORT INFORMATION
  Report Type: 
  Country: None (occurrence: None)
  Receive Date: 20111115
  Receipt Date: 20111102
  Transmission Date: 20120403
  Serious: Yes (Other)
  Sender: FDA-Public Use
  Company Number: JP-ASTRAZENECA-2011SE68658

PATIENT
  Age: 23 Year
  Sex: Female

DRUGS (10)
  1. IRON SUCROSE [Concomitant]
     Indication: IRON DEFICIENCY ANAEMIA
     Dates: start: 20111014
  2. OXYTOCIN [Concomitant]
     Indication: THERAPEUTIC PROCEDURE
     Dates: start: 20111013, end: 20111015
  3. CLINDAMYCIN [Concomitant]
     Indication: INTRAUTERINE INFECTION
     Dates: start: 20111016, end: 20111017
  4. METHYLERGOMETRINE [Concomitant]
     Indication: THERAPEUTIC PROCEDURE
     Dates: start: 20111013, end: 20111015
  5. MEROPENEM [Suspect]
     Indication: INTRAUTERINE INFECTION
     Route: 042
     Dates: start: 20111016, end: 20111017
  6. PANTOL [Concomitant]
     Indication: THERAPEUTIC PROCEDURE
     Dates: start: 20111013, end: 20111015
  7. POTASSIUM CHLORIDE [Concomitant]
     Indication: THERAPEUTIC PROCEDURE
     Dates: start: 20111013, end: 20111015
  8. FLUMARIN [Concomitant]
     Indication: INFECTION PROPHYLAXIS
     Dates: start: 20111013, end: 20111015
  9. VEEN-D [Concomitant]
     Indication: THERAPEUTIC PROCEDURE
     Dates: start: 20111013, end: 20111015
  10. ADONA [Concomitant]
     Indication: THERAPEUTIC PROCEDURE
     Dates: start: 20111013, end: 20111015

REACTIONS (2)
  - APHASIA [None]
  - HEMIPARESIS [None]
